FAERS Safety Report 5481631-7 (Version None)
Quarter: 2007Q4

REPORT INFORMATION
  Report Type: 
  Country: None (occurrence: None)
  Receive Date: 20071010
  Receipt Date: 20071004
  Transmission Date: 20080405
  Serious: Yes (Hospitalization)
  Sender: FDA-Public Use
  Company Number: JP-BRACCO-BRO-011853

PATIENT
  Age: 71 Year
  Sex: Female
  Weight: 91 kg

DRUGS (7)
  1. IOPAMIRON [Suspect]
     Indication: THERAPEUTIC EMBOLISATION
     Dosage: TOTAL DOSE
     Route: 013
     Dates: start: 20070705, end: 20070705
  2. IOPAMIRON [Suspect]
     Dosage: TOTAL DOSE
     Route: 013
     Dates: start: 20070705, end: 20070705
  3. IOPAMIRON [Suspect]
     Indication: ANGIOGRAM CEREBRAL
     Dosage: TOTAL DOSE
     Route: 013
     Dates: start: 20070705, end: 20070705
  4. GLYBURIDE [Concomitant]
     Route: 050
  5. MELBIN [Concomitant]
     Route: 050
  6. AMLODIPINE [Concomitant]
     Route: 050
  7. LASIX [Concomitant]
     Route: 050

REACTIONS (1)
  - HEMIPLEGIA [None]
